FAERS Safety Report 4284590-8 (Version None)
Quarter: 2004Q1

REPORT INFORMATION
  Report Type: 
  Country: None (occurrence: None)
  Receive Date: 20040130
  Receipt Date: 20040108
  Transmission Date: 20041129
  Serious: Yes (Other)
  Sender: FDA-Public Use
  Company Number: GBS040114248

PATIENT
  Age: 60 Year
  Sex: Female
  Weight: 49 kg

DRUGS (4)
  1. VANCOMYCIN [Suspect]
     Dosage: 2 G
     Dates: start: 20031203
  2. DARBEPOETIN ALFA [Concomitant]
  3. IRBESARTAN [Concomitant]
  4. DOXAZOSIN MESYLATE [Concomitant]

REACTIONS (1)
  - MYALGIA [None]
